FAERS Safety Report 24396733 (Version 2)
Quarter: 2024Q4

REPORT INFORMATION
  Report Type: Spontaneous
  Country: JP (occurrence: JP)
  Receive Date: 20241004
  Receipt Date: 20241011
  Transmission Date: 20250114
  Serious: Yes (Other)
  Sender: GALDERMA
  Company Number: JP-GALDERMA-JP2024014490

PATIENT

DRUGS (5)
  1. NEMOLIZUMAB [Suspect]
     Active Substance: NEMOLIZUMAB
     Indication: Pruritus
     Dosage: 60 MILLIGRAM/4 WEEKS
     Route: 058
     Dates: start: 20240805, end: 20240805
  2. NEMOLIZUMAB [Suspect]
     Active Substance: NEMOLIZUMAB
     Dosage: 30 MILLIGRAM/4 WEEKS
     Route: 058
     Dates: start: 20240902, end: 20240902
  3. TENELIGLIPTIN [Concomitant]
     Active Substance: TENELIGLIPTIN
     Indication: Diabetes mellitus
     Dosage: 1 DOSAGE FORM
     Route: 048
  4. BETAMETHASONE DIPROPIONATE\CALCIPOTRIENE MONOHYDRATE [Concomitant]
     Active Substance: BETAMETHASONE DIPROPIONATE\CALCIPOTRIENE MONOHYDRATE
     Indication: Pruritus
     Dosage: 1 DOSAGE FORM
     Route: 061
     Dates: start: 20240518
  5. CLOBETASOL [Concomitant]
     Active Substance: CLOBETASOL
     Indication: Blister
     Dosage: 1 DOSAGE FORM
     Route: 061
     Dates: start: 20240518

REACTIONS (2)
  - Pemphigoid [Recovering/Resolving]
  - Intentional product use issue [Recovered/Resolved]

NARRATIVE: CASE EVENT DATE: 20240805
